FAERS Safety Report 25374061 (Version 1)
Quarter: 2025Q2

REPORT INFORMATION
  Report Type: Spontaneous
  Country: US (occurrence: None)
  Receive Date: 20250528
  Receipt Date: 20250528
  Transmission Date: 20250717
  Serious: No
  Sender: FDA-CTU
  Company Number: None

PATIENT
  Age: 59 Year
  Sex: Female
  Weight: 68.95 kg

DRUGS (2)
  1. AZELASTINE HYDROCHLORIDE [Suspect]
     Active Substance: AZELASTINE HYDROCHLORIDE
     Indication: Seasonal allergy
     Dosage: OTHER QUANTITY : 1 SPRAY IN EACH NOSTRIL ;?FREQUENCY : TWICE A DAY;?OTHER ROUTE : NOSTRIL SPRAY ;?
     Route: 050
     Dates: start: 20250404, end: 20250427
  2. ATENOLOL [Concomitant]
     Active Substance: ATENOLOL

REACTIONS (6)
  - Feeling abnormal [None]
  - Pain of skin [None]
  - Myalgia [None]
  - Heart rate increased [None]
  - Fatigue [None]
  - Chills [None]

NARRATIVE: CASE EVENT DATE: 20250421
